FAERS Safety Report 12962588 (Version 2)
Quarter: 2016Q4

REPORT INFORMATION
  Report Type: Spontaneous
  Country: BE (occurrence: BE)
  Receive Date: 20161121
  Receipt Date: 20161123
  Transmission Date: 20170207
  Serious: Yes (Death)
  Sender: FDA-Public Use
  Company Number: BE-SA-2016SA210998

PATIENT
  Age: 61 Year
  Sex: Female
  Weight: 112 kg

DRUGS (9)
  1. ADANCOR [Concomitant]
     Active Substance: NICORANDIL
     Route: 065
  2. PANTOMED [Concomitant]
     Active Substance: DEXPANTHENOL
     Route: 065
  3. LANOXIN [Concomitant]
     Active Substance: DIGOXIN
     Route: 065
  4. CLEXANE [Suspect]
     Active Substance: ENOXAPARIN SODIUM
     Indication: THROMBOSIS PROPHYLAXIS
     Route: 065
  5. APOCARD [Concomitant]
     Active Substance: FLECAINIDE ACETATE
     Route: 065
  6. CORDARONE [Concomitant]
     Active Substance: AMIODARONE HYDROCHLORIDE
     Route: 065
  7. GLUCOPHAGE [Concomitant]
     Active Substance: METFORMIN HYDROCHLORIDE
     Route: 065
  8. LIPITOR [Concomitant]
     Active Substance: ATORVASTATIN CALCIUM
     Route: 065
  9. DIAMICRON [Concomitant]
     Active Substance: GLICLAZIDE
     Route: 065

REACTIONS (6)
  - Malaise [Unknown]
  - Drug administration error [Unknown]
  - Death [Fatal]
  - Infection [Unknown]
  - Decubitus ulcer [Unknown]
  - Multiple organ dysfunction syndrome [Fatal]

NARRATIVE: CASE EVENT DATE: 20160926
